FAERS Safety Report 9321622 (Version 1)
Quarter: 2013Q2

REPORT INFORMATION
  Report Type: Spontaneous
  Country: CA (occurrence: CA)
  Receive Date: 20130531
  Receipt Date: 20130531
  Transmission Date: 20140414
  Serious: Yes (Other)
  Sender: FDA-Public Use
  Company Number: CA-TEVA-409175USA

PATIENT
  Age: 55 Year
  Sex: Female
  Weight: 76 kg

DRUGS (2)
  1. CARBOPLATIN [Suspect]
     Dosage: 32.381 MILLIGRAM DAILY;
     Route: 042
  2. PACLITAXEL INJECTION [Concomitant]
     Dosage: LIQUID INTRAVENOUS

REACTIONS (5)
  - Chest pain [Recovered/Resolved]
  - Flushing [Recovered/Resolved]
  - Malaise [Recovered/Resolved]
  - Nausea [Recovered/Resolved]
  - Vomiting [Recovered/Resolved]
